FAERS Safety Report 9100534 (Version 2)
Quarter: 2015Q1

REPORT INFORMATION
  Report Type: Report from Study
  Country: CL (occurrence: CL)
  Receive Date: 20130215
  Receipt Date: 20150119
  Transmission Date: 20150721
  Serious: Yes (Death, Other)
  Sender: FDA-Public Use
  Company Number: CL-ROCHE-1125413

PATIENT
  Age: 49 Year
  Sex: Male
  Weight: 80 kg

DRUGS (4)
  1. ENALAPRIL [Concomitant]
     Active Substance: ENALAPRIL
     Indication: HYPERTENSION
     Route: 048
  2. OXALIPLATIN. [Suspect]
     Active Substance: OXALIPLATIN
     Indication: COLON CANCER
     Dosage: DATE OF LAST DOSE PRIOR TO AE- 05/JAN/2013
     Route: 042
     Dates: start: 20121002, end: 20121217
  3. TRAMADOL [Concomitant]
     Active Substance: TRAMADOL
     Indication: COLON CANCER
  4. XELODA [Suspect]
     Active Substance: CAPECITABINE
     Indication: COLON CANCER
     Dosage: DATE OF LAST DOSE PRIOR TO AE- 05/JAN/2013
     Route: 048
     Dates: start: 20121002, end: 20121230

REACTIONS (10)
  - Intestinal obstruction [Recovered/Resolved]
  - Decreased appetite [Not Recovered/Not Resolved]
  - Abdominal pain upper [Recovered/Resolved]
  - Vomiting [Recovered/Resolved]
  - Hiccups [Not Recovered/Not Resolved]
  - Nausea [Recovered/Resolved]
  - Decreased appetite [Not Recovered/Not Resolved]
  - Constipation [Not Recovered/Not Resolved]
  - Disease progression [Fatal]
  - Dyspepsia [Not Recovered/Not Resolved]

NARRATIVE: CASE EVENT DATE: 20130121
